FAERS Safety Report 18469096 (Version 2)
Quarter: 2020Q4

REPORT INFORMATION
  Report Type: Spontaneous
  Country: IT (occurrence: IT)
  Receive Date: 20201105
  Receipt Date: 20201222
  Transmission Date: 20210114
  Serious: Yes (Other)
  Sender: FDA-Public Use
  Company Number: IT-SAMSUNG BIOEPIS-SB-2020-33267

PATIENT
  Age: 52 Year
  Sex: Male

DRUGS (3)
  1. ARCOXIA [Concomitant]
     Active Substance: ETORICOXIB
     Indication: ARTHRALGIA
     Route: 065
  2. APROVEL [Concomitant]
     Active Substance: IRBESARTAN
     Indication: PRODUCT USED FOR UNKNOWN INDICATION
     Route: 065
  3. FLIXABI [Suspect]
     Active Substance: INFLIXIMAB
     Indication: ANKYLOSING SPONDYLITIS
     Route: 065

REACTIONS (7)
  - Anosmia [Recovering/Resolving]
  - Productive cough [Recovering/Resolving]
  - Dysgeusia [Recovering/Resolving]
  - Infection [Recovering/Resolving]
  - Pyrexia [Recovering/Resolving]
  - COVID-19 [Unknown]
  - Asthenia [Recovering/Resolving]

NARRATIVE: CASE EVENT DATE: 20200324
